FAERS Safety Report 13617243 (Version 1)
Quarter: 2017Q2

REPORT INFORMATION
  Report Type: Spontaneous
  Country: US (occurrence: US)
  Receive Date: 20170606
  Receipt Date: 20170606
  Transmission Date: 20170830
  Serious: Yes (Other)
  Sender: FDA-Public Use
  Company Number: US-SA-2016SA197038

PATIENT
  Age: 87 Year
  Sex: Female

DRUGS (7)
  1. SOLOSTAR [Suspect]
     Active Substance: DEVICE
     Indication: TYPE 2 DIABETES MELLITUS
  2. SOLOSTAR [Suspect]
     Active Substance: DEVICE
     Indication: TYPE 2 DIABETES MELLITUS
  3. SOLOSTAR [Suspect]
     Active Substance: DEVICE
     Indication: TYPE 2 DIABETES MELLITUS
  4. LANTUS SOLOSTAR [Suspect]
     Active Substance: INSULIN GLARGINE
     Indication: TYPE 2 DIABETES MELLITUS
     Dosage: DOSE: 26 UNITS ON EACH SIDE WHICH DOES ADD UP TO 52 UNITS
     Route: 065
  5. NOVOLOG [Concomitant]
     Active Substance: INSULIN ASPART
  6. LANTUS SOLOSTAR [Suspect]
     Active Substance: INSULIN GLARGINE
     Indication: TYPE 2 DIABETES MELLITUS
     Dosage: DOSE: 26 UNITS ON EACH SIDE WHICH DOES ADD UP TO 52 UNITS
     Route: 065
  7. LANTUS SOLOSTAR [Suspect]
     Active Substance: INSULIN GLARGINE
     Indication: TYPE 2 DIABETES MELLITUS
     Dosage: DOSE: 26 UNITS ON EACH SIDE WHICH DOES ADD UP TO 52 UNITS
     Route: 065

REACTIONS (3)
  - Device issue [Unknown]
  - Diabetes mellitus inadequate control [Unknown]
  - Product use issue [Unknown]
